FAERS Safety Report 6869158-9 (Version None)
Quarter: 2010Q3

REPORT INFORMATION
  Report Type: 
  Country: None (occurrence: None)
  Receive Date: 20100722
  Receipt Date: 20080707
  Transmission Date: 20110219
  Serious: Yes (Other)
  Sender: FDA-Public Use
  Company Number: US-PFIZER INC-2008056548

PATIENT
  Sex: Female
  Weight: 77.272 kg

DRUGS (2)
  1. CHANTIX [Suspect]
     Indication: SMOKING CESSATION THERAPY
     Dates: start: 20080501, end: 20080702
  2. METOPROLOL [Concomitant]
     Indication: TACHYCARDIA

REACTIONS (3)
  - DRUG INEFFECTIVE [None]
  - MALAISE [None]
  - MUSCLE SPASMS [None]
